FAERS Safety Report 10710767 (Version 3)
Quarter: 2015Q1

REPORT INFORMATION
  Report Type: Spontaneous
  Country: US (occurrence: US)
  Receive Date: 20150114
  Receipt Date: 20150217
  Transmission Date: 20150721
  Serious: Yes (Other)
  Sender: FDA-Public Use
  Company Number: US-009507513-1501USA003646

PATIENT
  Age: 17 Year
  Sex: Female
  Weight: 75.28 kg

DRUGS (1)
  1. NEXPLANON [Suspect]
     Active Substance: ETONOGESTREL
     Indication: CONTRACEPTION
     Dosage: UNK
     Route: 023
     Dates: start: 20140806, end: 20141223

REACTIONS (5)
  - Affect lability [Recovered/Resolved]
  - Mood altered [Recovered/Resolved]
  - Incorrect route of drug administration [Recovered/Resolved]
  - Intentional overdose [Recovered/Resolved]
  - Suicide attempt [Recovered/Resolved]

NARRATIVE: CASE EVENT DATE: 2014
